FAERS Safety Report 8831371 (Version 2)
Quarter: 2012Q4

REPORT INFORMATION
  Report Type: 
  Country: US (occurrence: US)
  Receive Date: 20121008
  Receipt Date: 20121029
  Transmission Date: 20130627
  Serious: Yes (Death, Other)
  Sender: FDA-Public Use
  Company Number: US-TEVA-362328USA

PATIENT
  Sex: Male

DRUGS (1)
  1. CLOZAPINE [Suspect]
     Indication: MENTAL DISORDER
     Route: 048

REACTIONS (3)
  - Sepsis [Fatal]
  - Faecaloma [Fatal]
  - Respiratory distress [Fatal]
